FAERS Safety Report 11099187 (Version 2)
Quarter: 2015Q2

REPORT INFORMATION
  Report Type: Spontaneous
  Country: GB (occurrence: GB)
  Receive Date: 20150508
  Receipt Date: 20150515
  Transmission Date: 20150821
  Serious: Yes (Disabling, Other)
  Sender: FDA-Public Use
  Company Number: GB-TEVA-560289ACC

PATIENT
  Age: 71 Year
  Sex: Male
  Weight: 104 kg

DRUGS (10)
  1. BISOPROLOL [Concomitant]
     Active Substance: BISOPROLOL
     Dosage: 1 DOSAGE FORMS DAILY; IN MORNING
     Dates: start: 20130705
  2. ASPIRIN. [Concomitant]
     Active Substance: ASPIRIN
     Dosage: 1 DOSAGE FORMS DAILY;
     Dates: start: 20141205
  3. LANTUS [Concomitant]
     Active Substance: INSULIN GLARGINE
     Dosage: AS DIRECTED
     Dates: start: 20080512
  4. PARACETAMOL [Concomitant]
     Active Substance: ACETAMINOPHEN
     Dosage: 4 DOSAGE FORMS DAILY; ONE OR TWO TO BE TAKEN FOUR TIMES A DAY
     Dates: start: 20150220, end: 20150304
  5. SIMVASTATIN. [Concomitant]
     Active Substance: SIMVASTATIN
     Dosage: 1 DOSAGE FORMS DAILY; AT NIGHT
     Dates: start: 20081007
  6. SINEMET [Concomitant]
     Active Substance: CARBIDOPA\LEVODOPA
     Dates: start: 20140103
  7. METFORMIN [Concomitant]
     Active Substance: METFORMIN HYDROCHLORIDE
     Dosage: 3 DOSAGE FORMS DAILY;
     Dates: start: 20071218
  8. AZILECT [Suspect]
     Active Substance: RASAGILINE MESYLATE
     Dates: start: 20150220
  9. BISACODYL. [Concomitant]
     Active Substance: BISACODYL
     Dosage: 1 DOSAGE FORMS DAILY; TAKE ONE OR TWO AT NIGHT
     Dates: start: 20140508
  10. RAMIPRIL. [Concomitant]
     Active Substance: RAMIPRIL
     Dosage: 1 DOSAGE FORMS DAILY; TAKEN IN THE MORNING
     Dates: start: 20080918

REACTIONS (2)
  - Malaise [Recovered/Resolved]
  - Blood glucose increased [Recovered/Resolved]

NARRATIVE: CASE EVENT DATE: 20150421
